FAERS Safety Report 10037108 (Version 1)
Quarter: 2014Q1

REPORT INFORMATION
  Report Type: Spontaneous
  Country: US (occurrence: None)
  Receive Date: 20140325
  Receipt Date: 20140325
  Transmission Date: 20141002
  Serious: Yes (Hospitalization)
  Sender: FDA-Public Use
  Company Number: None

PATIENT
  Age: 63 Year
  Sex: Female
  Weight: 48.08 kg

DRUGS (7)
  1. ISOSORBIDE MONONITRATE ER TABLETS 30MG [Suspect]
     Indication: ANGINA UNSTABLE
     Route: 048
     Dates: start: 20140208, end: 20140209
  2. ISOSORBIDE MONONITRATE ER TABLETS 30MG [Suspect]
     Indication: DYSPNOEA
     Route: 048
     Dates: start: 20140208, end: 20140209
  3. ISOSORBIDE MONONITRATE ER TABLETS 30MG [Suspect]
     Indication: PROPHYLAXIS
     Route: 048
     Dates: start: 20140208, end: 20140209
  4. ASPIRIN [Concomitant]
  5. PRAVASTATIN [Concomitant]
  6. LEVOTHYROXINE [Concomitant]
  7. AMLODIPINE [Concomitant]

REACTIONS (6)
  - Muscle spasms [None]
  - Burning sensation [None]
  - Arthralgia [None]
  - Arthralgia [None]
  - Joint swelling [None]
  - Dyspnoea [None]
